FAERS Safety Report 11173165 (Version 2)
Quarter: 2015Q2

REPORT INFORMATION
  Report Type: Other
  Country: DK (occurrence: US)
  Receive Date: 20150608
  Receipt Date: 20150623
  Transmission Date: 20150821
  Serious: Yes (Other)
  Sender: FDA-Public Use
  Company Number: US-FRI-1000077222

PATIENT
  Age: 90 Year
  Sex: Male

DRUGS (5)
  1. ASPIRIN. [Concomitant]
     Active Substance: ASPIRIN
     Dosage: 81 MG
  2. ESCITALOPRAM [Suspect]
     Active Substance: ESCITALOPRAM OXALATE
     Dosage: 10 MG
  3. MEMANTINE [Suspect]
     Active Substance: MEMANTINE
     Dosage: 10 MG
  4. SEROQUEL [Concomitant]
     Active Substance: QUETIAPINE FUMARATE
     Dosage: 25 MG
  5. CLOPIDOGREL [Concomitant]
     Active Substance: CLOPIDOGREL BISULFATE
     Dosage: 37.5 MG

REACTIONS (3)
  - Presyncope [Unknown]
  - Dizziness [Unknown]
  - Atrioventricular block second degree [Unknown]
